FAERS Safety Report 10747676 (Version 1)
Quarter: 2015Q1

REPORT INFORMATION
  Report Type: Spontaneous
  Country: US (occurrence: None)
  Receive Date: 20150128
  Receipt Date: 20150128
  Transmission Date: 20150721
  Serious: Yes (Death, Hospitalization)
  Sender: FDA-Public Use
  Company Number: None

PATIENT
  Age: 92 Year
  Sex: Female
  Weight: 64 kg

DRUGS (16)
  1. OMEPRAZOLE (PRILOSEC) [Concomitant]
  2. FUROSEMIDE (LASIX) [Concomitant]
  3. MONTELUKAST (SINGULAIR) [Concomitant]
  4. RIVAROXABAN 15 MG JANSSEN [Suspect]
     Active Substance: RIVAROXABAN
     Indication: ATRIAL FIBRILLATION
     Route: 048
  5. GLYBURIDE-METFORMIN (GLUCOVANCE) [Concomitant]
  6. SIMVASTATIN (ZOCOR) [Concomitant]
  7. LISINOPRIL (ZESTRIL) [Concomitant]
  8. COLCHICINE (COLCRYS) [Concomitant]
  9. LUTEIN [Concomitant]
     Active Substance: LUTEIN
  10. METOPROLOL (LOPRESSOR) [Concomitant]
  11. ASPIRIN 81 MG [Suspect]
     Active Substance: ASPIRIN
     Indication: ATRIAL FIBRILLATION
     Route: 048
  12. CALCIUM CITRATE-VITAMIN D [Concomitant]
     Active Substance: CALCIUM CITRATE\VITAMIN D
  13. NAPROXEN SODIUM (ALEVE) [Concomitant]
  14. FERROUS SULFATE (IRON) [Concomitant]
  15. MULTIPLE VITAMINS-MINERALS (DAILY MULTIPLE VITAMINS/MINER) [Concomitant]
  16. OXYBUTYNIN (DITROPAN) [Concomitant]

REACTIONS (7)
  - Anaemia [None]
  - Troponin increased [None]
  - Blood lactic acid increased [None]
  - Lipase increased [None]
  - Refusal of treatment by relative [None]
  - Refusal of treatment by patient [None]
  - Gastrointestinal haemorrhage [None]

NARRATIVE: CASE EVENT DATE: 20140212
